FAERS Safety Report 21239400 (Version 1)
Quarter: 2022Q3

REPORT INFORMATION
  Report Type: Spontaneous
  Country: US (occurrence: US)
  Receive Date: 20220822
  Receipt Date: 20220822
  Transmission Date: 20221027
  Serious: Yes (Hospitalization, Other)
  Sender: FDA-Public Use
  Company Number: US-PFIZER INC-202201067823

PATIENT
  Age: 66 Year
  Sex: Female

DRUGS (5)
  1. PAXLOVID [Suspect]
     Active Substance: NIRMATRELVIR\RITONAVIR
     Indication: COVID-19 treatment
     Dosage: UNK
     Dates: start: 20220805, end: 20220808
  2. TOPRIL [Concomitant]
     Dosage: UNK
  3. ASPIRIN [Concomitant]
     Active Substance: ASPIRIN
     Dosage: UNK
  4. SYNTHROID [Concomitant]
     Active Substance: LEVOTHYROXINE SODIUM
     Dosage: UNK
  5. BONIVA [Concomitant]
     Active Substance: IBANDRONATE SODIUM
     Dosage: UNK

REACTIONS (2)
  - Cerebrovascular accident [Recovered/Resolved]
  - Hypertension [Recovered/Resolved]

NARRATIVE: CASE EVENT DATE: 20220801
